FAERS Safety Report 17565615 (Version 4)
Quarter: 2020Q2

REPORT INFORMATION
  Report Type: Spontaneous
  Country: US (occurrence: US)
  Receive Date: 20200320
  Receipt Date: 20200430
  Transmission Date: 20200713
  Serious: Yes (Other)
  Sender: FDA-Public Use
  Company Number: US-PFIZER INC-2020121425

PATIENT
  Age: 62 Year
  Sex: Female

DRUGS (1)
  1. XELJANZ [Suspect]
     Active Substance: TOFACITINIB CITRATE
     Indication: RHEUMATOID ARTHRITIS
     Dosage: 5 MG, 2X/DAY
     Route: 048
     Dates: start: 201908, end: 20200130

REACTIONS (8)
  - Influenza [Unknown]
  - Pneumonia [Unknown]
  - Condition aggravated [Unknown]
  - Malaise [Recovered/Resolved]
  - Respiratory disorder [Recovered/Resolved]
  - Sinusitis [Unknown]
  - Arthralgia [Unknown]
  - Depressed mood [Unknown]
